FAERS Safety Report 9662831 (Version 2)
Quarter: 2013Q4

REPORT INFORMATION
  Report Type: Spontaneous
  Country: US (occurrence: US)
  Receive Date: 20131031
  Receipt Date: 20131031
  Transmission Date: 20140711
  Serious: No
  Sender: FDA-Public Use
  Company Number: US-PURDUE-USA-2010-0056590

PATIENT
  Age: 57 Year
  Sex: Male
  Weight: 127 kg

DRUGS (3)
  1. OXYCONTIN (NDA 22-272) [Suspect]
     Indication: PAIN
     Dosage: 20 MG, TID
     Route: 048
     Dates: start: 201008
  2. OXYCONTIN (NDA 22-272) [Suspect]
     Indication: NEURALGIA
     Dosage: 80 MG, HS
     Route: 048
     Dates: start: 201008
  3. OXYCONTIN (NDA 22-272) [Suspect]
     Dosage: 40 MG, UNK

REACTIONS (2)
  - Pain [Not Recovered/Not Resolved]
  - Drug effect decreased [Not Recovered/Not Resolved]
